FAERS Safety Report 8351993-1 (Version None)
Quarter: 2012Q2

REPORT INFORMATION
  Report Type: 
  Country: None (occurrence: None)
  Receive Date: 20120511
  Receipt Date: 20120507
  Transmission Date: 20120825
  Serious: Yes (Hospitalization)
  Sender: FDA-Public Use
  Company Number: US-BAYER-2011-029655

PATIENT
  Age: 30 Year
  Sex: Female
  Weight: 108.84 kg

DRUGS (12)
  1. YASMIN [Suspect]
     Indication: CONTRACEPTION
  2. YASMIN [Suspect]
     Indication: ACNE
  3. YAZ [Suspect]
     Indication: ACNE
  4. TERBUTALINE [Concomitant]
     Dosage: UNK
     Dates: start: 20080101
  5. CYANOCOBALAMIN [Concomitant]
     Dosage: BID
  6. METFORMIN HCL [Concomitant]
     Indication: POLYCYSTIC OVARIES
     Dosage: 850 MG, UNK
     Dates: start: 20060101, end: 20090101
  7. CLARAVIS [Concomitant]
     Dosage: 40 MG, UNK
  8. CHANTIX [Concomitant]
  9. LEXAPRO [Concomitant]
     Indication: DEPRESSION
     Dosage: 10 MG, UNK
     Dates: start: 20070502, end: 20090829
  10. YAZ [Suspect]
     Indication: CONTRACEPTION
  11. ACCUTANE [Concomitant]
     Indication: ACNE
     Dosage: 40 MG, UNK
     Dates: start: 20081205, end: 20090409
  12. IUD NOS [Concomitant]
     Dosage: UNK
     Dates: start: 20090814

REACTIONS (7)
  - CHEST PAIN [None]
  - ASTHENIA [None]
  - ANGER [None]
  - ANXIETY [None]
  - FEAR [None]
  - PULMONARY EMBOLISM [None]
  - EMOTIONAL DISTRESS [None]
